FAERS Safety Report 6023137-2 (Version None)
Quarter: 2008Q4

REPORT INFORMATION
  Report Type: 
  Country: None (occurrence: None)
  Receive Date: 20081223
  Receipt Date: 20081209
  Transmission Date: 20090506
  Serious: Yes (Hospitalization)
  Sender: FDA-Public Use
  Company Number: 2008S1021870

PATIENT
  Age: 40 Year
  Sex: Female

DRUGS (3)
  1. GLIMEPIRIDE [Suspect]
     Indication: TYPE 2 DIABETES MELLITUS
     Dosage: 1 MG; DAILY;
     Dates: start: 20050803
  2. PIOGLITAZONE [Concomitant]
  3. BUFORMIN [Concomitant]

REACTIONS (4)
  - ALKALOSIS [None]
  - ASTHMA [None]
  - STRIDOR [None]
  - THERAPEUTIC RESPONSE DECREASED [None]
